FAERS Safety Report 6979627-9 (Version None)
Quarter: 2010Q3

REPORT INFORMATION
  Report Type: 
  Country: None (occurrence: None)
  Receive Date: 20100910
  Receipt Date: 20100910
  Transmission Date: 20110219
  Serious: Yes (Hospitalization, Other)
  Sender: FDA-Public Use
  Company Number: None

PATIENT
  Age: 48 Year
  Sex: Female
  Weight: 124.7392 kg

DRUGS (1)
  1. LUNESTA [Suspect]
     Indication: SLEEP DISORDER
     Dosage: 1 TIME A DAY AT BEDTIME 1 TIME A DAY PO
     Route: 048
     Dates: start: 20050811, end: 20051022

REACTIONS (6)
  - AGITATION [None]
  - HALLUCINATION, AUDITORY [None]
  - MEMORY IMPAIRMENT [None]
  - MORBID THOUGHTS [None]
  - NIGHTMARE [None]
  - PARANOIA [None]
